FAERS Safety Report 10544466 (Version 2)
Quarter: 2014Q4

REPORT INFORMATION
  Report Type: Spontaneous
  Country: BR (occurrence: BR)
  Receive Date: 20141027
  Receipt Date: 20141121
  Transmission Date: 20150529
  Serious: Yes (Other)
  Sender: FDA-Public Use
  Company Number: BR-GLAXOSMITHKLINE-BR2014GSK011580

PATIENT
  Age: 1 Year
  Sex: Female
  Weight: 11 kg

DRUGS (3)
  1. PREDSIM (PREDNISOLONE) [Concomitant]
     Indication: BRONCHITIS
     Dosage: 4 ML, QD
     Route: 048
  2. BRONDILAT (ACEBROFYLLINE) [Concomitant]
     Indication: BRONCHITIS
     Dosage: 12 ML, BID
     Route: 048
  3. ZINNAT [Suspect]
     Active Substance: CEFUROXIME AXETIL
     Indication: SINUSITIS
     Dosage: 12.5 ML, BID
     Route: 048
     Dates: start: 20141018, end: 20141019

REACTIONS (5)
  - Vomiting [Recovered/Resolved]
  - Product quality issue [Unknown]
  - Haematemesis [Recovered/Resolved]
  - Throat irritation [Recovered/Resolved]
  - Retching [Recovered/Resolved]

NARRATIVE: CASE EVENT DATE: 20141018
